FAERS Safety Report 22251262 (Version 1)
Quarter: 2023Q2

REPORT INFORMATION
  Report Type: Spontaneous
  Country: CN (occurrence: CN)
  Receive Date: 20230425
  Receipt Date: 20230425
  Transmission Date: 20230721
  Serious: Yes (Hospitalization)
  Sender: FDA-Public Use
  Company Number: CN-PFIZER INC-PV202300072854

PATIENT
  Age: 9 Year
  Sex: Male
  Weight: 34 kg

DRUGS (5)
  1. ZITHROMAX [Suspect]
     Active Substance: AZITHROMYCIN DIHYDRATE
     Indication: Anti-infective therapy
     Dosage: 3 DF, 1X/DAY
     Route: 048
     Dates: start: 20230416, end: 20230416
  2. POTASSIUM SODIUM 14-DEOXY-11,12-DEHYDROANDROGRAPHOLIDE SUCCINATE [Suspect]
     Active Substance: POTASSIUM SODIUM 14-DEOXY-11,12-DEHYDROANDROGRAPHOLIDE SUCCINATE
     Indication: Anti-infective therapy
     Dosage: 120 MG, 1X/DAY
     Route: 041
     Dates: start: 20230416, end: 20230417
  3. CEFTRIAXONE SODIUM\TAZOBACTAM SODIUM [Suspect]
     Active Substance: CEFTRIAXONE SODIUM\TAZOBACTAM SODIUM
     Indication: Anti-infective therapy
     Dosage: 1 G, 1X/DAY
     Route: 041
     Dates: start: 20230416, end: 20230417
  4. SODIUM CHLORIDE [Concomitant]
     Active Substance: SODIUM CHLORIDE
     Indication: Vehicle solution use
     Dosage: 100 ML, 1X/DAY
     Route: 041
     Dates: start: 20230416, end: 20230416
  5. DEXTROSE [Concomitant]
     Active Substance: DEXTROSE\DEXTROSE MONOHYDRATE
     Indication: Vehicle solution use
     Dosage: 250 ML, 1X/DAY
     Route: 041
     Dates: start: 20230416, end: 20230417

REACTIONS (6)
  - Papule [Recovered/Resolved]
  - Lip swelling [Recovered/Resolved]
  - Flushing [Recovered/Resolved]
  - Urticaria [Recovered/Resolved]
  - Scratch [Recovered/Resolved]
  - Pruritus [Recovered/Resolved]

NARRATIVE: CASE EVENT DATE: 20230416
